FAERS Safety Report 15762566 (Version 1)
Quarter: 2018Q4

REPORT INFORMATION
  Report Type: Report from Study
  Country: AU (occurrence: AU)
  Receive Date: 20181226
  Receipt Date: 20181226
  Transmission Date: 20190205
  Serious: Yes (Life-Threatening, Other)
  Sender: FDA-Public Use
  Company Number: AU-CELGENEUS-AUS-20181206173

PATIENT
  Age: 59 Year
  Sex: Female

DRUGS (7)
  1. CYTARABINE. [Suspect]
     Active Substance: CYTARABINE
     Dosage: 10320 MILLIGRAM
     Route: 041
     Dates: start: 20131209, end: 20131214
  2. CYTARABINE. [Suspect]
     Active Substance: CYTARABINE
     Dosage: 9720 MILLIGRAM
     Route: 041
     Dates: start: 20130819, end: 20130824
  3. CYTARABINE. [Suspect]
     Active Substance: CYTARABINE
     Dosage: 9840 MILLIGRAM
     Route: 041
     Dates: start: 20130925, end: 20130930
  4. IDARUBICIN [Suspect]
     Active Substance: IDARUBICIN
     Indication: ACUTE MYELOID LEUKAEMIA
     Dosage: 19.8 MILLIGRAM
     Route: 041
     Dates: start: 20130714, end: 20130716
  5. REVLIMID [Suspect]
     Active Substance: LENALIDOMIDE
     Indication: ACUTE MYELOID LEUKAEMIA
     Dosage: 40 MILLIGRAM
     Route: 048
     Dates: start: 20140313, end: 20150311
  6. CYTARABINE. [Suspect]
     Active Substance: CYTARABINE
     Indication: ACUTE MYELOID LEUKAEMIA
     Dosage: 165 MILLIGRAM
     Route: 041
     Dates: start: 20130714, end: 20130722
  7. CYTARABINE. [Suspect]
     Active Substance: CYTARABINE
     Dosage: 9960 MILLIGRAM
     Route: 041
     Dates: start: 20131028, end: 20131102

REACTIONS (1)
  - Lung adenocarcinoma [Not Recovered/Not Resolved]

NARRATIVE: CASE EVENT DATE: 20180806
